FAERS Safety Report 11673720 (Version 1)
Quarter: 2015Q4

REPORT INFORMATION
  Report Type: Spontaneous
  Country: US (occurrence: None)
  Receive Date: 20151027
  Receipt Date: 20151027
  Transmission Date: 20160304
  Serious: Yes (Hospitalization)
  Sender: FDA-Public Use
  Company Number: None

PATIENT
  Age: 73 Year
  Sex: Male
  Weight: 100.8 kg

DRUGS (2)
  1. DESIPRAMINE [Suspect]
     Active Substance: DESIPRAMINE
     Indication: DEPRESSION
     Route: 048
     Dates: start: 20070518, end: 20151023
  2. BUPROPION. [Suspect]
     Active Substance: BUPROPION
     Route: 048
     Dates: start: 20150304, end: 20150404

REACTIONS (4)
  - Electrocardiogram QT prolonged [None]
  - Head injury [None]
  - Heart rate irregular [None]
  - Fall [None]

NARRATIVE: CASE EVENT DATE: 20150404
